FAERS Safety Report 5046385-7 (Version None)
Quarter: 2006Q2

REPORT INFORMATION
  Report Type: 
  Country: None (occurrence: None)
  Receive Date: 20060629
  Receipt Date: 20060620
  Transmission Date: 20061013
  Serious: Yes (Other)
  Sender: FDA-Public Use
  Company Number: 2006078502

PATIENT
  Sex: Female

DRUGS (1)
  1. DEPO-PROVERA [Suspect]
     Dosage: INTRAMUSCULAR
     Route: 030
     Dates: start: 20060620, end: 20060620

REACTIONS (2)
  - DYSPNOEA [None]
  - URTICARIA [None]
